FAERS Safety Report 15160084 (Version 1)
Quarter: 2018Q3

REPORT INFORMATION
  Report Type: Report from Study
  Country: PE (occurrence: PE)
  Receive Date: 20180718
  Receipt Date: 20180718
  Transmission Date: 20181010
  Serious: Yes (Other)
  Sender: FDA-Public Use
  Company Number: PE-SA-2018SA186012

PATIENT
  Age: 64 Year
  Sex: Female

DRUGS (3)
  1. LEFLUNOMIDE. [Suspect]
     Active Substance: LEFLUNOMIDE
     Dosage: UNK
     Dates: start: 20180628
  2. LEFLUNOMIDE. [Suspect]
     Active Substance: LEFLUNOMIDE
     Indication: RHEUMATOID ARTHRITIS
     Dosage: 20 MG, QD
     Route: 048
     Dates: start: 2014, end: 201711
  3. PREVINE D FORT [Concomitant]
     Indication: RHEUMATOID ARTHRITIS
     Dosage: UNK UNK, QD
     Route: 048
     Dates: start: 2013

REACTIONS (3)
  - Cardiomyopathy [Not Recovered/Not Resolved]
  - Gastritis [Not Recovered/Not Resolved]
  - Glaucoma [Not Recovered/Not Resolved]

NARRATIVE: CASE EVENT DATE: 2016
